FAERS Safety Report 6008913-4 (Version None)
Quarter: 2008Q4

REPORT INFORMATION
  Report Type: 
  Country: None (occurrence: None)
  Receive Date: 20081216
  Receipt Date: 20081210
  Transmission Date: 20090506
  Serious: Yes (Hospitalization)
  Sender: FDA-Public Use
  Company Number: B0549767A

PATIENT
  Age: 45 Year
  Sex: Male

DRUGS (5)
  1. EPIVIR [Suspect]
     Indication: HIV INFECTION
  2. EFAVIRENZ [Suspect]
     Indication: HIV INFECTION
  3. TRUVADA [Suspect]
     Indication: HIV INFECTION
  4. LEVOFLOXACIN [Concomitant]
  5. PREDNISONE [Concomitant]

REACTIONS (7)
  - HILAR LYMPHADENOPATHY [None]
  - IMMUNE RECONSTITUTION SYNDROME [None]
  - LUNG NEOPLASM [None]
  - LYMPHADENOPATHY MEDIASTINAL [None]
  - MYCOBACTERIUM AVIUM COMPLEX INFECTION [None]
  - PULMONARY MASS [None]
  - URINARY TRACT INFECTION [None]
